FAERS Safety Report 5090584-5 (Version None)
Quarter: 2006Q3

REPORT INFORMATION
  Report Type: 
  Country: None (occurrence: None)
  Receive Date: 20060828
  Receipt Date: 20060613
  Transmission Date: 20061208
  Serious: No
  Sender: FDA-Public Use
  Company Number: US-GLAXOSMITHKLINE-A0608861A

PATIENT
  Age: 57 Year
  Sex: Female

DRUGS (5)
  1. WELLBUTRIN XL [Suspect]
     Indication: DEPRESSION
     Dosage: 300MG PER DAY
     Route: 048
     Dates: start: 20000101, end: 20060501
  2. SYNTHROID [Concomitant]
  3. UNKNOWN MEDICATION [Concomitant]
  4. XANAX [Concomitant]
  5. LIPITOR [Concomitant]

REACTIONS (8)
  - AMNESIA [None]
  - BLOOD THYROID STIMULATING HORMONE INCREASED [None]
  - CRYING [None]
  - EMOTIONAL DISORDER [None]
  - FATIGUE [None]
  - HEADACHE [None]
  - OBSESSIVE THOUGHTS [None]
  - WEIGHT INCREASED [None]
